FAERS Safety Report 9670792 (Version 3)
Quarter: 2015Q4

REPORT INFORMATION
  Report Type: Spontaneous
  Country: US (occurrence: US)
  Receive Date: 20131106
  Receipt Date: 20151009
  Transmission Date: 20160305
  Serious: Yes (Hospitalization, Disabling)
  Sender: FDA-Public Use
  Company Number: US-BAYER-2013-131924

PATIENT
  Age: 49 Year
  Sex: Female
  Weight: 54.42 kg

DRUGS (7)
  1. DECADRON [Concomitant]
     Active Substance: DEXAMETHASONE
     Indication: HAEMORRHAGE INTRACRANIAL
  2. AMOXICILLIN. [Concomitant]
     Active Substance: AMOXICILLIN
     Dosage: 875 MG, BID (10 DAYS)
     Route: 048
     Dates: start: 20120301
  3. NORCO [Concomitant]
     Active Substance: ACETAMINOPHEN\HYDROCODONE BITARTRATE
  4. YASMIN [Suspect]
     Active Substance: DROSPIRENONE\ETHINYL ESTRADIOL
     Indication: VAGINAL HAEMORRHAGE
     Dosage: UNK
     Dates: start: 20030527, end: 20120302
  5. OCELLA [Suspect]
     Active Substance: DROSPIRENONE\ETHINYL ESTRADIOL
     Indication: VAGINAL HAEMORRHAGE
     Dosage: UNK
     Dates: start: 20030527, end: 20120302
  6. KEPPRA [Concomitant]
     Active Substance: LEVETIRACETAM
     Indication: CONVULSION PROPHYLAXIS
  7. NITROFURANTOIN. [Concomitant]
     Active Substance: NITROFURANTOIN
     Dosage: UNK
     Dates: start: 20120404

REACTIONS (11)
  - Haemorrhagic stroke [Recovering/Resolving]
  - Cerebral venous thrombosis [Recovering/Resolving]
  - Mental disorder [None]
  - Injury [Recovering/Resolving]
  - Anxiety [None]
  - Transverse sinus thrombosis [Recovering/Resolving]
  - Anhedonia [None]
  - Product use issue [None]
  - Pain [Recovering/Resolving]
  - Pain [None]
  - Cerebrovascular accident [None]

NARRATIVE: CASE EVENT DATE: 201203
